FAERS Safety Report 9029416 (Version 2)
Quarter: 2013Q1

REPORT INFORMATION
  Report Type: Spontaneous
  Country: JP (occurrence: JP)
  Receive Date: 20130125
  Receipt Date: 20130327
  Transmission Date: 20140127
  Serious: Yes (Death)
  Sender: FDA-Public Use
  Company Number: JP-EISAI INC-E7389-03472-SPO-JP

PATIENT
  Age: 53 Year
  Sex: Female
  Weight: 64 kg

DRUGS (3)
  1. HALAVEN [Suspect]
     Indication: BREAST CANCER RECURRENT
     Route: 041
     Dates: start: 20130111, end: 20130118
  2. HALAVEN [Suspect]
     Indication: METASTASES TO LIVER
  3. HALAVEN [Suspect]
     Indication: UTERINE CANCER

REACTIONS (1)
  - Hepatic function abnormal [Fatal]
